FAERS Safety Report 16464968 (Version 1)
Quarter: 2019Q2

REPORT INFORMATION
  Report Type: Spontaneous
  Country: US (occurrence: US)
  Receive Date: 20190621
  Receipt Date: 20190621
  Transmission Date: 20190711
  Serious: Yes (Other)
  Sender: FDA-Public Use
  Company Number: US-BAYER-2019-117127

PATIENT

DRUGS (1)
  1. VITRAKVI [Suspect]
     Active Substance: LAROTRECTINIB
     Indication: NEOPLASM
     Dosage: UNK
     Dates: start: 20190322, end: 2019

REACTIONS (1)
  - Neoplasm progression [None]

NARRATIVE: CASE EVENT DATE: 20190618
